FAERS Safety Report 5022133-1 (Version None)
Quarter: 2006Q2

REPORT INFORMATION
  Report Type: 
  Country: None (occurrence: None)
  Receive Date: 20060605
  Receipt Date: 20060525
  Transmission Date: 20061013
  Serious: No
  Sender: FDA-Public Use
  Company Number: 2006-141870-NL

PATIENT
  Sex: Female

DRUGS (8)
  1. MIRTAZAPINE [Suspect]
     Dosage: 45 MG ORAL
     Route: 048
  2. DIAZEPAM [Concomitant]
  3. CHLORPROMAZINE [Concomitant]
  4. TRAMADOL HCL [Concomitant]
  5. SALBUTAMOL [Concomitant]
  6. MULTIVITAMIN [Concomitant]
  7. PARACETAMOL [Concomitant]
  8. METOCLOPRAMIDE [Concomitant]

REACTIONS (2)
  - ABORTION SPONTANEOUS [None]
  - DRUG EXPOSURE DURING PREGNANCY [None]
